FAERS Safety Report 9631040 (Version 2)
Quarter: 2014Q1

REPORT INFORMATION
  Report Type: Spontaneous
  Country: US (occurrence: None)
  Receive Date: 20131016
  Receipt Date: 20140307
  Transmission Date: 20141002
  Serious: Yes (Other)
  Sender: FDA-Public Use
  Company Number: 2013-US-001658

PATIENT
  Age: 45 Year
  Sex: Female

DRUGS (5)
  1. XYREM (SODIUM OXYBATE) ORAL SOLUTION, 500 MG/ML [Suspect]
     Indication: PRODUCT USED FOR UNKNOWN INDICATION
     Dosage: FOR 1 WEEK
     Route: 048
     Dates: start: 20111013
  2. NUVIGIL (ARMODAFINIL) [Suspect]
     Indication: PRODUCT USED FOR UNKNOWN INDICATION
  3. PROVIGIL (MODAFINIL) [Suspect]
     Indication: PRODUCT USED FOR UNKNOWN INDICATION
  4. AMPHETAMINE MIXED SALTS [Concomitant]
  5. PRILOSEC [Concomitant]

REACTIONS (19)
  - Osteonecrosis [None]
  - Haemorrhage [None]
  - Haematochezia [None]
  - Abscess jaw [None]
  - Injury [None]
  - Swelling face [None]
  - Medical device complication [None]
  - Tinnitus [None]
  - Neck pain [None]
  - Muscle spasms [None]
  - Rhinorrhoea [None]
  - Thirst [None]
  - Weight increased [None]
  - Arthralgia [None]
  - Fatigue [None]
  - Somnambulism [None]
  - Condition aggravated [None]
  - Somnolence [None]
  - Vision blurred [None]
